FAERS Safety Report 7325298-1 (Version None)
Quarter: 2011Q1

REPORT INFORMATION
  Report Type: 
  Country: None (occurrence: None)
  Receive Date: 20110302
  Receipt Date: 20110218
  Transmission Date: 20110831
  Serious: Yes (Hospitalization)
  Sender: FDA-Public Use
  Company Number: DE-JNJFOC-20110207118

PATIENT
  Sex: Female
  Weight: 52.4 kg

DRUGS (10)
  1. GOLIMUMAB [Suspect]
     Route: 058
  2. FOLSAN [Concomitant]
     Route: 048
  3. GOLIMUMAB [Suspect]
     Indication: RHEUMATOID ARTHRITIS
     Route: 058
  4. CALCIUM [Concomitant]
     Route: 048
  5. ACTONEL [Concomitant]
     Route: 048
  6. IBUPROFEN [Concomitant]
     Route: 048
  7. PREDNISOLONE [Concomitant]
     Route: 048
  8. METHOTREXATE [Suspect]
     Indication: RHEUMATOID ARTHRITIS
     Route: 048
  9. METHOTREXATE [Concomitant]
     Route: 065
  10. BONDIOL [Concomitant]
     Route: 048

REACTIONS (1)
  - THYROIDECTOMY [None]
